FAERS Safety Report 11395744 (Version 1)
Quarter: 2015Q3

REPORT INFORMATION
  Report Type: Spontaneous
  Country: US (occurrence: US)
  Receive Date: 20150819
  Receipt Date: 20150819
  Transmission Date: 20151125
  Serious: No
  Sender: FDA-Public Use
  Company Number: US-JNJFOC-20150710576

PATIENT
  Age: 14 Year
  Sex: Female

DRUGS (4)
  1. INVEGA [Suspect]
     Active Substance: PALIPERIDONE
     Indication: ANXIETY
     Route: 048
     Dates: start: 201503
  2. INVEGA [Suspect]
     Active Substance: PALIPERIDONE
     Indication: SELF INJURIOUS BEHAVIOUR
     Route: 048
     Dates: start: 201503
  3. INVEGA [Suspect]
     Active Substance: PALIPERIDONE
     Indication: EATING DISORDER
     Route: 048
     Dates: start: 201503
  4. ZOLOFT [Concomitant]
     Active Substance: SERTRALINE HYDROCHLORIDE
     Indication: ANXIETY
     Route: 065
     Dates: start: 201503

REACTIONS (4)
  - Product use issue [Unknown]
  - Adverse event [Unknown]
  - Blood prolactin increased [Not Recovered/Not Resolved]
  - Drug prescribing error [Unknown]

NARRATIVE: CASE EVENT DATE: 201504
